FAERS Safety Report 6277834-4 (Version None)
Quarter: 2009Q3

REPORT INFORMATION
  Report Type: 
  Country: None (occurrence: None)
  Receive Date: 20090722
  Receipt Date: 20090713
  Transmission Date: 20100115
  Serious: Yes (Hospitalization, Disabling, Other)
  Sender: FDA-Public Use
  Company Number: US-ABBOTT-09P-163-0584912-00

PATIENT
  Sex: Female

DRUGS (1)
  1. HUMIRA [Suspect]
     Indication: RHEUMATOID ARTHRITIS
     Route: 058
     Dates: end: 20090301

REACTIONS (3)
  - CHOLECYSTITIS ACUTE [None]
  - GLOMERULONEPHRITIS PROLIFERATIVE [None]
  - RENAL FAILURE [None]
